FAERS Safety Report 9262767 (Version 4)
Quarter: 2013Q4

REPORT INFORMATION
  Report Type: Spontaneous
  Country: DE (occurrence: DE)
  Receive Date: 20130430
  Receipt Date: 20131001
  Transmission Date: 20140711
  Serious: Yes (Death, Hospitalization, Other)
  Sender: FDA-Public Use
  Company Number: PHHY2013DE042080

PATIENT
  Age: 70 Year
  Sex: Male

DRUGS (1)
  1. AFINITOR [Suspect]
     Indication: NEUROENDOCRINE TUMOUR
     Dosage: 10 MG, DAY
     Route: 048
     Dates: start: 20130206, end: 20130412

REACTIONS (7)
  - Death [Fatal]
  - Haemolysis [Unknown]
  - Pancytopenia [Unknown]
  - Anaemia [Unknown]
  - Procalcitonin increased [Unknown]
  - Infection [Unknown]
  - Haemoglobin decreased [Unknown]
